FAERS Safety Report 5012803-3 (Version None)
Quarter: 2006Q2

REPORT INFORMATION
  Report Type: 
  Country: None (occurrence: None)
  Receive Date: 20060530
  Receipt Date: 20060315
  Transmission Date: 20061013
  Serious: Yes (Other)
  Sender: FDA-Public Use
  Company Number: US-BRISTOL-MYERS SQUIBB COMPANY-13316476

PATIENT

DRUGS (1)
  1. ERBITUX [Suspect]

REACTIONS (3)
  - DYSPNOEA [None]
  - PRURITUS [None]
  - RASH GENERALISED [None]
